FAERS Safety Report 6451808-2 (Version None)
Quarter: 2009Q4

REPORT INFORMATION
  Report Type: 
  Country: None (occurrence: None)
  Receive Date: 20091123
  Receipt Date: 20091119
  Transmission Date: 20100525
  Serious: Yes (Death, Hospitalization, Other)
  Sender: FDA-Public Use
  Company Number: US-ABBOTT-09P-163-0496021-00

PATIENT
  Sex: Male
  Weight: 99.88 kg

DRUGS (19)
  1. ZEMPLAR [Suspect]
     Indication: HYPERPARATHYROIDISM
     Dosage: MONDAYS AND THURSDAYS (2 IN 1 WEEK)
     Route: 048
     Dates: start: 20080901
  2. SIMVASTATIN [Interacting]
     Indication: BLOOD CHOLESTEROL INCREASED
  3. COREG [Concomitant]
     Indication: CARDIAC FAILURE CONGESTIVE
     Route: 048
  4. COUMADIN [Concomitant]
     Indication: ANTICOAGULANT THERAPY
     Dosage: 2MG (MON + FRI), 3MG (OTHER 5 DAYS)
     Route: 048
  5. FISH OIL [Concomitant]
     Indication: DRUG USE FOR UNKNOWN INDICATION
     Route: 048
  6. VICODIN [Concomitant]
     Indication: DRUG USE FOR UNKNOWN INDICATION
  7. LASIX [Concomitant]
     Indication: CARDIAC DISORDER
     Route: 048
  8. LASIX [Concomitant]
     Indication: CARDIAC FAILURE CONGESTIVE
  9. NEURONTIN [Concomitant]
     Indication: PAIN IN EXTREMITY
     Route: 048
  10. NEURONTIN [Concomitant]
     Indication: DIABETES MELLITUS
  11. PLAVIX [Concomitant]
     Indication: CARDIAC DISORDER
     Route: 048
  12. PLAVIX [Concomitant]
  13. SYNTHROID [Concomitant]
     Indication: HYPOTHYROIDISM
     Route: 048
  14. NITROGLYCERIN [Concomitant]
     Indication: CARDIAC DISORDER
     Dosage: DAILY-ON IN AM AND OFF IN PM
     Route: 062
  15. NITROGLYCERIN [Concomitant]
  16. LANTUS [Concomitant]
     Indication: DIABETES MELLITUS
     Dosage: QHS
  17. NEBULIZER [Concomitant]
     Indication: DRUG USE FOR UNKNOWN INDICATION
  18. TERAZOSIN HCL [Concomitant]
     Indication: BENIGN PROSTATIC HYPERPLASIA
  19. INSULIN HUMULIN [Concomitant]
     Indication: DIABETES MELLITUS
     Dosage: 10U BEFORE BREAKFAST + LUNCH, 20U BEFORE DINNER
     Route: 050

REACTIONS (10)
  - ABASIA [None]
  - ASTHENIA [None]
  - CARDIAC ARREST [None]
  - DRUG INTERACTION [None]
  - ENZYME ABNORMALITY [None]
  - FALL [None]
  - RENAL IMPAIRMENT [None]
  - RHABDOMYOLYSIS [None]
  - UNEVALUABLE EVENT [None]
  - WEIGHT INCREASED [None]
